FAERS Safety Report 6655333-5 (Version None)
Quarter: 2010Q1

REPORT INFORMATION
  Report Type: 
  Country: None (occurrence: None)
  Receive Date: 20100329
  Receipt Date: 20100317
  Transmission Date: 20100710
  Serious: Yes (Hospitalization, Other)
  Sender: FDA-Public Use
  Company Number: PHHY2010FR16516

PATIENT
  Sex: Female

DRUGS (3)
  1. CLOZAPINE [Suspect]
     Dosage: UNK
     Dates: start: 20090203
  2. CLOZAPINE [Suspect]
     Dosage: UNK
     Dates: start: 20090731, end: 20100112
  3. LAMICTAL CD [Suspect]
     Dosage: 100 MG, UNK
     Dates: start: 20060101

REACTIONS (5)
  - BLOOD GLUCOSE ABNORMAL [None]
  - GAIT DISTURBANCE [None]
  - GENERAL PHYSICAL HEALTH DETERIORATION [None]
  - PARANEOPLASTIC SYNDROME [None]
  - RASH MACULAR [None]
